FAERS Safety Report 9165077 (Version 1)
Quarter: 2013Q1

REPORT INFORMATION
  Report Type: Spontaneous
  Country: UA (occurrence: None)
  Receive Date: 20130228
  Receipt Date: 20130228
  Transmission Date: 20140127
  Serious: Yes (Other)
  Sender: FDA-Public Use
  Company Number: GPV/UKR/13/0028186

PATIENT
  Age: 79 Year
  Sex: Male

DRUGS (1)
  1. ATOCOR [Suspect]
     Indication: HYPERCHOLESTEROLAEMIA
     Dosage: 1 IN 24 HR
     Dates: start: 20090406

REACTIONS (3)
  - Dyspnoea [None]
  - Pruritus [None]
  - Hyperaemia [None]
